FAERS Safety Report 8077003-1 (Version None)
Quarter: 2012Q1

REPORT INFORMATION
  Report Type: 
  Country: None (occurrence: None)
  Receive Date: 20120127
  Receipt Date: 20120124
  Transmission Date: 20120608
  Serious: Yes (Other)
  Sender: FDA-Public Use
  Company Number: PT-VIIV HEALTHCARE LIMITED-B0777499A

PATIENT
  Sex: Female
  Weight: 70 kg

DRUGS (2)
  1. COMBIVIR [Suspect]
     Indication: HIV INFECTION
     Route: 048
     Dates: start: 20000101, end: 20120101
  2. KALETRA [Concomitant]
     Indication: HIV INFECTION
     Dates: start: 20000101

REACTIONS (1)
  - MACROCYTOSIS [None]
